FAERS Safety Report 6291747-3 (Version None)
Quarter: 2009Q3

REPORT INFORMATION
  Report Type: 
  Country: None (occurrence: None)
  Receive Date: 20090730
  Receipt Date: 20090727
  Transmission Date: 20100115
  Serious: Yes (Other)
  Sender: FDA-Public Use
  Company Number: US-ASTRAZENECA-2009UW02911

PATIENT
  Age: 652 Month
  Sex: Male

DRUGS (2)
  1. SYMBICORT [Suspect]
     Indication: CHRONIC OBSTRUCTIVE PULMONARY DISEASE
     Dosage: 160/4.5 UG ONCE FOR SUFFERING AND EVERY 12 HOURS
     Route: 055
     Dates: start: 20080418
  2. ALBUTEROL [Concomitant]

REACTIONS (3)
  - LARYNGITIS [None]
  - MYOCARDIAL INFARCTION [None]
  - PNEUMONIA [None]
